FAERS Safety Report 5372287-2 (Version None)
Quarter: 2007Q2

REPORT INFORMATION
  Report Type: 
  Country: None (occurrence: None)
  Receive Date: 20070627
  Receipt Date: 20070620
  Transmission Date: 20071010
  Serious: Yes (Other)
  Sender: FDA-Public Use
  Company Number: US-ROCHE-428833

PATIENT
  Age: 20 Year
  Sex: Male
  Weight: 66.7 kg

DRUGS (2)
  1. ACCUTANE [Suspect]
     Route: 065
     Dates: start: 19941024, end: 19950201
  2. IBUPROFEN [Concomitant]

REACTIONS (8)
  - COLITIS ULCERATIVE [None]
  - DEPRESSED MOOD [None]
  - GASTRITIS [None]
  - GASTROOESOPHAGEAL REFLUX DISEASE [None]
  - HIATUS HERNIA [None]
  - INFLAMMATORY BOWEL DISEASE [None]
  - PROCTITIS [None]
  - SUICIDAL IDEATION [None]
